FAERS Safety Report 12110640 (Version 1)
Quarter: 2016Q1

REPORT INFORMATION
  Report Type: Spontaneous
  Country: US (occurrence: US)
  Receive Date: 20160224
  Receipt Date: 20160224
  Transmission Date: 20160526
  Serious: No
  Sender: FDA-Public Use
  Company Number: US-PFIZER INC-2016104896

PATIENT
  Age: 60 Year
  Sex: Male
  Weight: 81.19 kg

DRUGS (1)
  1. NORVASC [Suspect]
     Active Substance: AMLODIPINE BESYLATE
     Indication: BLOOD PRESSURE ABNORMAL
     Dosage: 5 MG A DAY AT NIGHT, 1X/DAY

REACTIONS (3)
  - Product quality issue [Unknown]
  - Product difficult to swallow [Unknown]
  - Choking sensation [Unknown]
